FAERS Safety Report 6765858-X (Version None)
Quarter: 2010Q2

REPORT INFORMATION
  Report Type: 
  Country: None (occurrence: None)
  Receive Date: 20100611
  Receipt Date: 20100607
  Transmission Date: 20101027
  Serious: Yes (Life-Threatening, Hospitalization, Disabling)
  Sender: FDA-Public Use
  Company Number: CA-ASTRAZENECA-2010SE26577

PATIENT
  Age: 70 Year
  Sex: Female
  Weight: 81.6 kg

DRUGS (2)
  1. CRESTOR [Suspect]
     Route: 048
  2. TYLENOL [Suspect]

REACTIONS (5)
  - ACTIVITIES OF DAILY LIVING IMPAIRED [None]
  - DYSSTASIA [None]
  - MUSCLE DISORDER [None]
  - MUSCLE SPASMS [None]
  - YELLOW SKIN [None]
